FAERS Safety Report 7503422-5 (Version None)
Quarter: 2011Q2

REPORT INFORMATION
  Report Type: 
  Country: None (occurrence: None)
  Receive Date: 20110525
  Receipt Date: 20110516
  Transmission Date: 20111010
  Serious: Yes (Death, Hospitalization)
  Sender: FDA-Public Use
  Company Number: Z0004015A

PATIENT
  Sex: Male
  Weight: 76 kg

DRUGS (3)
  1. SANDOGLOBULIN [Concomitant]
     Route: 042
     Dates: start: 20100507, end: 20100508
  2. OFATUMUMAB [Suspect]
     Route: 042
     Dates: start: 20091130, end: 20100329
  3. CHLORAMBUCIL [Suspect]
     Route: 048
     Dates: start: 20091130

REACTIONS (2)
  - DYSPNOEA [None]
  - SEPSIS [None]
